FAERS Safety Report 5505783-5 (Version None)
Quarter: 2007Q4

REPORT INFORMATION
  Report Type: 
  Country: None (occurrence: None)
  Receive Date: 20071102
  Receipt Date: 20071018
  Transmission Date: 20080405
  Serious: Yes (Other)
  Sender: FDA-Public Use
  Company Number: JP-PFIZER INC-2007089451

PATIENT
  Age: 72 Year
  Sex: Female

DRUGS (6)
  1. MIGLITOL TABLET [Suspect]
     Indication: DIABETES MELLITUS
     Dosage: DAILY DOSE:150MG
     Route: 048
  2. LIPITOR [Suspect]
     Indication: HYPERLIPIDAEMIA
     Route: 048
  3. VASOLAN [Suspect]
     Dosage: DAILY DOSE:120MG
     Route: 048
     Dates: start: 20070901, end: 20071018
  4. AMARYL [Suspect]
     Indication: DIABETES MELLITUS
     Route: 048
  5. BETAPRESSIN [Suspect]
     Indication: HYPERTENSION
     Route: 048
     Dates: start: 20070115
  6. ACTOS [Suspect]
     Indication: DIABETES MELLITUS
     Route: 048

REACTIONS (1)
  - LIVER DISORDER [None]
